FAERS Safety Report 23888518 (Version 1)
Quarter: 2024Q2

REPORT INFORMATION
  Report Type: Other
  Country: FR (occurrence: None)
  Receive Date: 20240523
  Receipt Date: 20240523
  Transmission Date: 20240716
  Serious: Yes (Other)
  Sender: FDA-Public Use
  Company Number: FR-Square Pharmaceuticals PLC-000017

PATIENT
  Age: 61 Year
  Sex: Female

DRUGS (1)
  1. ACYCLOVIR [Suspect]
     Active Substance: ACYCLOVIR
     Indication: Ophthalmic herpes simplex

REACTIONS (3)
  - Ophthalmic herpes simplex [Unknown]
  - Disease recurrence [Unknown]
  - Drug resistance mutation [Unknown]
